FAERS Safety Report 4864262-9 (Version None)
Quarter: 2005Q4

REPORT INFORMATION
  Report Type: 
  Country: None (occurrence: None)
  Receive Date: 20051222
  Receipt Date: 20051209
  Transmission Date: 20060501
  Serious: Yes (Hospitalization)
  Sender: FDA-Public Use
  Company Number: 2005AC01936

PATIENT
  Age: 626 Month
  Sex: Female

DRUGS (1)
  1. PULMICORT [Suspect]
     Route: 045
     Dates: start: 20040901

REACTIONS (3)
  - COUGH [None]
  - ORAL PRURITUS [None]
  - THROAT IRRITATION [None]
